FAERS Safety Report 13666473 (Version 1)
Quarter: 2017Q2

REPORT INFORMATION
  Report Type: Spontaneous
  Country: US (occurrence: US)
  Receive Date: 20170619
  Receipt Date: 20170619
  Transmission Date: 20170830
  Serious: No
  Sender: FDA-Public Use
  Company Number: US-ROCHE-1392645

PATIENT
  Age: 77 Year
  Sex: Male

DRUGS (1)
  1. XELODA [Suspect]
     Active Substance: CAPECITABINE
     Indication: PANCREATIC CARCINOMA
     Dosage: TAKE 2 (500MG) AND 1 (150MG0 TAB 2 X A DAY
     Route: 065
     Dates: start: 20140414

REACTIONS (3)
  - Stomatitis [Unknown]
  - Oral mucosal eruption [Unknown]
  - Chest pain [Unknown]
